FAERS Safety Report 16587308 (Version 2)
Quarter: 2019Q3

REPORT INFORMATION
  Report Type: Spontaneous
  Country: US (occurrence: US)
  Receive Date: 20190717
  Receipt Date: 20190814
  Transmission Date: 20191004
  Serious: No
  Sender: FDA-Public Use
  Company Number: US-SA-2019SA187574

PATIENT
  Age: 75 Year
  Sex: Male

DRUGS (3)
  1. PRALUENT [Suspect]
     Active Substance: ALIROCUMAB
     Indication: CARDIAC DISORDER
  2. PRALUENT [Suspect]
     Active Substance: ALIROCUMAB
     Indication: ANGINA PECTORIS
  3. PRALUENT [Suspect]
     Active Substance: ALIROCUMAB
     Indication: ARTERIOSCLEROSIS CORONARY ARTERY
     Dosage: 150 MG, QOW
     Route: 058
     Dates: start: 20190117

REACTIONS (5)
  - Wrong technique in device usage process [Unknown]
  - Back pain [Unknown]
  - Pain in extremity [Unknown]
  - Product administered at inappropriate site [Unknown]
  - Injury associated with device [Unknown]
